FAERS Safety Report 4851802-9 (Version None)
Quarter: 2005Q4

REPORT INFORMATION
  Report Type: 
  Country: None (occurrence: None)
  Receive Date: 20051209
  Receipt Date: 20051128
  Transmission Date: 20060501
  Serious: Yes (Other)
  Sender: FDA-Public Use
  Company Number: 219931

PATIENT
  Sex: Female

DRUGS (2)
  1. MABTHERA             (RITUXIMAB) [Suspect]
  2. ANTHRACYCLINE NOS [Suspect]

REACTIONS (3)
  - CARDIOVASCULAR DISORDER [None]
  - DRUG INTERACTION [None]
  - MYOCARDITIS [None]
